FAERS Safety Report 6430136-5 (Version None)
Quarter: 2009Q4

REPORT INFORMATION
  Report Type: 
  Country: None (occurrence: None)
  Receive Date: 20091106
  Receipt Date: 20091025
  Transmission Date: 20100525
  Serious: Yes (Other)
  Sender: FDA-Public Use
  Company Number: DE-MYLANLABS-2009S1018780

PATIENT
  Age: 38 Year
  Sex: Male

DRUGS (5)
  1. ZOLPIDEM [Suspect]
     Indication: INTENTIONAL OVERDOSE
     Route: 048
  2. IBUPROFEN [Suspect]
     Indication: INTENTIONAL OVERDOSE
     Route: 048
  3. MIRTAZELON [Suspect]
     Indication: INTENTIONAL OVERDOSE
     Route: 048
  4. PARACETAMOL [Suspect]
     Indication: INTENTIONAL OVERDOSE
     Route: 048
  5. ALCOHOL [Suspect]
     Indication: INTENTIONAL OVERDOSE
     Route: 048

REACTIONS (5)
  - ALCOHOL POISONING [None]
  - DIZZINESS [None]
  - INTENTIONAL OVERDOSE [None]
  - SUICIDE ATTEMPT [None]
  - VOMITING [None]
